FAERS Safety Report 7824176-9 (Version None)
Quarter: 2011Q4

REPORT INFORMATION
  Report Type: 
  Country: None (occurrence: None)
  Receive Date: 20111019
  Receipt Date: 20111014
  Transmission Date: 20120403
  Serious: No
  Sender: FDA-Public Use
  Company Number: US-B.I. PHARMACEUTICALS,INC./RIDGEFIELD-2011-BP-24440BP

PATIENT
  Sex: Female

DRUGS (9)
  1. VITAMIN B-12 [Concomitant]
     Indication: SUPPLEMENTATION THERAPY
  2. BIOTIN [Concomitant]
     Indication: SUPPLEMENTATION THERAPY
  3. M.V.I. [Concomitant]
     Indication: SUPPLEMENTATION THERAPY
  4. CARDURA [Concomitant]
     Indication: HYPERTENSION
  5. PRADAXA [Suspect]
     Indication: CEREBROVASCULAR ACCIDENT PROPHYLAXIS
     Dosage: 300 MG
     Route: 048
     Dates: start: 20110912
  6. SYNTHROID [Concomitant]
     Indication: HYPOTHYROIDISM
  7. MAGNESIUM [Concomitant]
     Indication: SUPPLEMENTATION THERAPY
  8. RESTORIL [Concomitant]
     Indication: INSOMNIA
  9. FISH OIL [Concomitant]
     Indication: SUPPLEMENTATION THERAPY

REACTIONS (5)
  - FEELING ABNORMAL [None]
  - DRY MOUTH [None]
  - DECREASED APPETITE [None]
  - THIRST [None]
  - ALOPECIA [None]
